FAERS Safety Report 14741372 (Version 2)
Quarter: 2018Q2

REPORT INFORMATION
  Report Type: Report from Study
  Country: DE (occurrence: DE)
  Receive Date: 20180410
  Receipt Date: 20180507
  Transmission Date: 20180711
  Serious: Yes (Life-Threatening, Hospitalization)
  Sender: FDA-Public Use
  Company Number: DE-PFIZER INC-2018144885

PATIENT
  Age: 74 Year
  Sex: Male
  Weight: 87 kg

DRUGS (8)
  1. DIAZEPAM. [Concomitant]
     Active Substance: DIAZEPAM
     Indication: BRONCHIAL CARCINOMA
     Dosage: 5 MILLIGRAM DAILY; DAILY DOSE: 5 MG MILLGRAM(S) EVERY DAYS
     Route: 048
     Dates: start: 20150625
  2. ALIMTA [Suspect]
     Active Substance: PEMETREXED DISODIUM
     Indication: BRONCHIAL CARCINOMA
     Dosage: 1035 MILLIGRAM DAILY; DAILY DOSE: 1035 MG MILLGRAM(S) EVERY 22 DAYS
     Route: 042
     Dates: start: 20150625
  3. GRANISETRON [Concomitant]
     Active Substance: GRANISETRON
     Indication: BRONCHIAL CARCINOMA
     Dosage: 1 MG, UNK
     Route: 048
     Dates: start: 20150625
  4. CARBOPLATIN. [Suspect]
     Active Substance: CARBOPLATIN
     Indication: BRONCHIAL CARCINOMA
     Dosage: 475 MILLIGRAM DAILY; DAILY DOSE: 475 MG MILLGRAM(S) EVERY 22 DAYS
     Route: 042
     Dates: start: 20150625
  5. AVASTIN [Suspect]
     Active Substance: BEVACIZUMAB
     Indication: BRONCHIAL CARCINOMA
     Dosage: 7.5 MG/KG DAILY; DAILY DOSE: 7.5 MG/KG MILLIGRAM(S)/KILOGRAM EVERY 22 DAYS
     Route: 042
     Dates: start: 20150806, end: 20151008
  6. CISPLATIN TEVA [Suspect]
     Active Substance: CISPLATIN
     Indication: BRONCHIAL CARCINOMA
     Dosage: 155 MILLIGRAM DAILY; DAILY DOSE: 155 MG MILLGRAM(S) EVERY 22 DAYS
     Route: 042
     Dates: start: 20150625
  7. APREPITANT. [Concomitant]
     Active Substance: APREPITANT
     Indication: BRONCHIAL CARCINOMA
     Dosage: 80 MG, UNK
     Route: 048
     Dates: start: 20150625
  8. DEXAMETHASONE. [Concomitant]
     Active Substance: DEXAMETHASONE
     Indication: BRONCHIAL CARCINOMA
     Dosage: 8 MG, UNK
     Route: 048
     Dates: start: 20150625

REACTIONS (3)
  - Transient ischaemic attack [Recovered/Resolved]
  - Pneumonia [Recovered/Resolved]
  - Ileus [Recovered/Resolved]

NARRATIVE: CASE EVENT DATE: 20150708
